FAERS Safety Report 9955442 (Version 2)
Quarter: 2014Q1

REPORT INFORMATION
  Report Type: Report from Study
  Country: US (occurrence: US)
  Receive Date: 20140304
  Receipt Date: 20140304
  Transmission Date: 20141002
  Serious: No
  Sender: FDA-Public Use
  Company Number: US-ABBVIE-13P-163-1055974-00

PATIENT
  Sex: Female
  Weight: 72.64 kg

DRUGS (12)
  1. HUMIRA [Suspect]
     Indication: RHEUMATOID ARTHRITIS
     Dates: start: 2009, end: 201302
  2. HUMIRA [Suspect]
     Indication: ANKYLOSING SPONDYLITIS
  3. AMBIEN [Concomitant]
     Indication: INSOMNIA
  4. ASTELIN [Concomitant]
     Indication: HYPERSENSITIVITY
  5. CYTOMEL [Concomitant]
     Indication: THYROID DISORDER
  6. IBUPROFEN [Concomitant]
     Indication: PAIN
  7. MULTIVITAMIN [Concomitant]
     Indication: VITAMIN SUPPLEMENTATION
  8. PROVENTIL [Concomitant]
     Indication: ASTHMA
  9. PROZAC [Concomitant]
     Indication: DEPRESSION
  10. SYNTHROID [Concomitant]
     Indication: THYROID DISORDER
  11. VITAMIN B12 [Concomitant]
     Indication: HYPOVITAMINOSIS
  12. VITAMIN D [Concomitant]
     Indication: HYPOVITAMINOSIS

REACTIONS (3)
  - Fatigue [Unknown]
  - Drug ineffective [Not Recovered/Not Resolved]
  - Rheumatoid arthritis [Not Recovered/Not Resolved]
